FAERS Safety Report 15602043 (Version 2)
Quarter: 2018Q4

REPORT INFORMATION
  Report Type: Report from Study
  Country: US (occurrence: US)
  Receive Date: 20181109
  Receipt Date: 20181226
  Transmission Date: 20190205
  Serious: Yes (Other)
  Sender: FDA-Public Use
  Company Number: US-PFIZER INC-2018257485

PATIENT
  Age: 59 Year
  Sex: Male

DRUGS (5)
  1. SUTENT [Suspect]
     Active Substance: SUNITINIB MALATE
     Indication: RENAL CELL CARCINOMA
     Dosage: 50 MG, CYCLIC (DAILY, 4 WEEKS ON/ 2WEEKS OFF)
     Route: 048
     Dates: start: 20180523, end: 20180802
  2. SUTENT [Suspect]
     Active Substance: SUNITINIB MALATE
     Dosage: 50 MG, DAILY
     Route: 048
     Dates: start: 20181009, end: 20181013
  3. SUTENT [Suspect]
     Active Substance: SUNITINIB MALATE
     Dosage: 50 MG, DAILY
     Route: 048
     Dates: start: 20181023
  4. SUTENT [Suspect]
     Active Substance: SUNITINIB MALATE
     Dosage: 37.5 MG, CYCLIC(DAILY FOR 4 WEEKS IN A ROW, THEN 2 WEEKS OFF)
     Route: 048
     Dates: start: 20180824, end: 20181008
  5. SUTENT [Suspect]
     Active Substance: SUNITINIB MALATE
     Dosage: 50 MG, CYCLIC (DAILY FOR 4 WEEKS THEN 2 WEEKS OFF)
     Route: 048
     Dates: start: 20180618

REACTIONS (23)
  - Red blood cell count decreased [Recovering/Resolving]
  - Abdominal pain [Unknown]
  - Hypertension [Unknown]
  - Liver function test increased [Recovered/Resolved]
  - Anaemia [Unknown]
  - Abdominal distension [Unknown]
  - Flatulence [Unknown]
  - Decreased appetite [Recovering/Resolving]
  - Nausea [Not Recovered/Not Resolved]
  - Platelet count decreased [Recovering/Resolving]
  - Haemorrhoids [Not Recovered/Not Resolved]
  - Asthenia [Recovered/Resolved]
  - Upper-airway cough syndrome [Unknown]
  - Subcutaneous abscess [Recovered/Resolved]
  - Rash [Unknown]
  - Dysgeusia [Recovered/Resolved]
  - Hepatic enzyme increased [Recovered/Resolved]
  - Chromaturia [Recovered/Resolved]
  - Diarrhoea [Not Recovered/Not Resolved]
  - Cough [Unknown]
  - Fatigue [Recovered/Resolved]
  - Dyspepsia [Recovered/Resolved]
  - Constipation [Recovered/Resolved]

NARRATIVE: CASE EVENT DATE: 2018
